FAERS Safety Report 7221154-8 (Version None)
Quarter: 2011Q1

REPORT INFORMATION
  Report Type: 
  Country: None (occurrence: None)
  Receive Date: 20110112
  Receipt Date: 20110105
  Transmission Date: 20110831
  Serious: Yes (Death)
  Sender: FDA-Public Use
  Company Number: GB-TEVA-262149ISR

PATIENT
  Age: 25 Year
  Sex: Male

DRUGS (4)
  1. MOXIFLOXACIN [Suspect]
     Indication: TUBERCULOSIS
  2. RITONAVIR [Suspect]
  3. FLUCONAZOLE [Suspect]
     Indication: ORAL CANDIDIASIS
  4. ONDANSETRON [Suspect]

REACTIONS (2)
  - ARRHYTHMIA [None]
  - SUDDEN DEATH [None]
